FAERS Safety Report 6429222-5 (Version None)
Quarter: 2009Q4

REPORT INFORMATION
  Report Type: 
  Country: None (occurrence: None)
  Receive Date: 20091105
  Receipt Date: 20091023
  Transmission Date: 20100525
  Serious: Yes (Other)
  Sender: FDA-Public Use
  Company Number: PHEH2009US08744

PATIENT
  Sex: Female

DRUGS (1)
  1. RECLAST [Suspect]
     Dosage: UNK
     Dates: start: 20090223, end: 20090223

REACTIONS (6)
  - BONE DISORDER [None]
  - BONE FORMATION INCREASED [None]
  - INSOMNIA [None]
  - ORAL PAIN [None]
  - OROPHARYNGEAL BLISTERING [None]
  - SURGERY [None]
